FAERS Safety Report 15776224 (Version 9)
Quarter: 2019Q4

REPORT INFORMATION
  Report Type: Report from Study
  Country: JP (occurrence: JP)
  Receive Date: 20181231
  Receipt Date: 20191227
  Transmission Date: 20200122
  Serious: Yes (Death, Life-Threatening, Disabling, Other)
  Sender: FDA-Public Use
  Company Number: JP-ASTELLAS-2018JP024766

PATIENT
  Age: 83 Year
  Sex: Female
  Weight: 54 kg

DRUGS (11)
  1. ASP2215 [Suspect]
     Active Substance: GILTERITINIB
     Route: 048
     Dates: start: 20190113, end: 20190114
  2. BAKTAR [Concomitant]
     Active Substance: SULFAMETHOXAZOLE\TRIMETHOPRIM
     Indication: PROPHYLAXIS
     Route: 048
  3. PASIL [Concomitant]
     Active Substance: PAZUFLOXACIN MESILATE
     Indication: FEBRILE NEUTROPENIA
     Dosage: 500 MG/DAY, UNKNOWN FREQ.
     Route: 065
     Dates: start: 20190108, end: 20190202
  4. VANCOMYCIN [Concomitant]
     Active Substance: VANCOMYCIN
     Indication: FEBRILE NEUTROPENIA
     Dosage: 1.5 G/DAY, UNKNOWN FREQ.
     Route: 065
     Dates: start: 20181226, end: 20190108
  5. FLUCONAZOLE. [Concomitant]
     Active Substance: FLUCONAZOLE
     Indication: PROPHYLAXIS
     Dosage: 100 MG/DAY, UNKNOWN FREQ.
     Route: 048
  6. ASP2215 [Suspect]
     Active Substance: GILTERITINIB
     Route: 048
     Dates: start: 20190115, end: 20190118
  7. FEBURIC [Concomitant]
     Active Substance: FEBUXOSTAT
     Indication: PROPHYLAXIS
     Dosage: 40 MG/DAY, UNKNOWN FREQ.
     Route: 048
  8. ASP2215 [Suspect]
     Active Substance: GILTERITINIB
     Indication: ACUTE MYELOID LEUKAEMIA REFRACTORY
     Route: 048
     Dates: start: 20181212, end: 20181226
  9. MEROPENEM. [Concomitant]
     Active Substance: MEROPENEM
     Indication: FEBRILE NEUTROPENIA
     Dosage: 1.5 G/DAY, UNKNOWN FREQ.
     Route: 065
     Dates: start: 20181226, end: 20190202
  10. ASP2215 [Suspect]
     Active Substance: GILTERITINIB
     Route: 048
     Dates: start: 20181227, end: 20190112
  11. ASP2215 [Suspect]
     Active Substance: GILTERITINIB
     Route: 048
     Dates: start: 20190119, end: 20190119

REACTIONS (5)
  - Febrile neutropenia [Unknown]
  - Acute myeloid leukaemia refractory [Fatal]
  - Acute kidney injury [Recovering/Resolving]
  - Liver disorder [Recovered/Resolved]
  - Pyrexia [Not Recovered/Not Resolved]

NARRATIVE: CASE EVENT DATE: 20181225
